FAERS Safety Report 21577687 (Version 1)
Quarter: 2022Q4

REPORT INFORMATION
  Report Type: Spontaneous
  Country: DE (occurrence: DE)
  Receive Date: 20221110
  Receipt Date: 20221110
  Transmission Date: 20230113
  Serious: Yes (Hospitalization)
  Sender: FDA-Public Use
  Company Number: DE-ADRED-07625-01

PATIENT
  Age: 58 Year
  Sex: Male
  Weight: 90 kg

DRUGS (9)
  1. PHENPROCOUMON [Suspect]
     Active Substance: PHENPROCOUMON
     Indication: Product used for unknown indication
     Dosage: 3 MG, ACCORDING TO INR
     Route: 048
  2. ESCITALOPRAM [Suspect]
     Active Substance: ESCITALOPRAM OXALATE
     Indication: Product used for unknown indication
     Dosage: 10 MG, 1-0-0-0
     Route: 048
  3. IBUPROFEN [Suspect]
     Active Substance: IBUPROFEN
     Indication: Product used for unknown indication
     Dosage: 600 MILLIGRAM AS NEEDED
     Route: 048
  4. ALBUTEROL [Concomitant]
     Active Substance: ALBUTEROL
     Dosage: IF NEEDED
  5. BUPROPION [Concomitant]
     Active Substance: BUPROPION
     Dosage: 150 MG, 1-0-0-0
     Route: 048
  6. FLUTICASONE FUROATE\VILANTEROL TRIFENATATE [Concomitant]
     Active Substance: FLUTICASONE FUROATE\VILANTEROL TRIFENATATE
     Dosage: 100|25 ?G, 1-0-0-0
  7. ALLOPURINOL [Concomitant]
     Active Substance: ALLOPURINOL
     Dosage: 100 MG, 1-0-0-0
     Route: 048
  8. QUETIAPINE [Concomitant]
     Active Substance: QUETIAPINE
     Dosage: 400 MG, 0-0-1-0
     Route: 048
  9. ATORVASTATIN [Concomitant]
     Active Substance: ATORVASTATIN
     Dosage: 100 MG, 1-0-0-0
     Route: 048

REACTIONS (6)
  - Abnormal clotting factor [Unknown]
  - Prothrombin time abnormal [Unknown]
  - Haematochezia [Unknown]
  - International normalised ratio abnormal [Unknown]
  - Product monitoring error [Unknown]
  - Product prescribing error [Unknown]

NARRATIVE: CASE EVENT DATE: 20210825
